FAERS Safety Report 22360932 (Version 9)
Quarter: 2024Q2

REPORT INFORMATION
  Report Type: Spontaneous
  Country: US (occurrence: US)
  Receive Date: 20230524
  Receipt Date: 20240415
  Transmission Date: 20240716
  Serious: Yes (Other)
  Sender: FDA-Public Use
  Company Number: US-PFIZER INC-PV202300090621

PATIENT
  Age: 64 Year
  Sex: Female

DRUGS (1)
  1. IBRANCE [Suspect]
     Active Substance: PALBOCICLIB
     Dosage: 125 MG

REACTIONS (15)
  - Neutropenia [Not Recovered/Not Resolved]
  - Spinal operation [Unknown]
  - Venous thrombosis [Unknown]
  - Fatigue [Not Recovered/Not Resolved]
  - Dyspepsia [Unknown]
  - Red blood cell count decreased [Unknown]
  - Dyspnoea [Recovering/Resolving]
  - Cough [Unknown]
  - White blood cell count decreased [Unknown]
  - Vision blurred [Unknown]
  - Nausea [Unknown]
  - Oropharyngeal pain [Not Recovered/Not Resolved]
  - Hepatic enzyme increased [Unknown]
  - Platelet count decreased [Unknown]
  - Paraesthesia [Unknown]

NARRATIVE: CASE EVENT DATE: 20230101
